FAERS Safety Report 4679893-9 (Version None)
Quarter: 2005Q2

REPORT INFORMATION
  Report Type: 
  Country: None (occurrence: None)
  Receive Date: 20050602
  Receipt Date: 20050309
  Transmission Date: 20051028
  Serious: No
  Sender: FDA-Public Use
  Company Number: US-GLAXOSMITHKLINE-A0549053A

PATIENT
  Age: 80 Year
  Sex: Female

DRUGS (2)
  1. AUGMENTIN [Suspect]
     Indication: ILL-DEFINED DISORDER
     Dosage: 250MG THREE TIMES PER DAY
     Route: 048
     Dates: start: 20050304, end: 20050305
  2. CHEMOTHERAPY [Concomitant]

REACTIONS (1)
  - MOUTH HAEMORRHAGE [None]
